FAERS Safety Report 6793064-1 (Version None)
Quarter: 2010Q2

REPORT INFORMATION
  Report Type: 
  Country: None (occurrence: None)
  Receive Date: 20100624
  Receipt Date: 20081117
  Transmission Date: 20101027
  Serious: No
  Sender: FDA-Public Use
  Company Number: US-PFIZER INC-2008097481

PATIENT
  Sex: Male
  Weight: 90 kg

DRUGS (12)
  1. PROCARDIA XL [Suspect]
     Indication: BLOOD PRESSURE
  2. LASIX [Concomitant]
  3. ACCUPRIL [Concomitant]
  4. AVODART [Concomitant]
  5. ALL OTHER THERAPEUTIC PRODUCTS [Concomitant]
  6. VYTORIN [Concomitant]
  7. TOPROL-XL [Concomitant]
  8. TAMSULOSIN HYDROCHLORIDE [Concomitant]
  9. ACETYLSALICYLIC ACID [Concomitant]
  10. VITAMIN C [Concomitant]
  11. VITAMIN E [Concomitant]
  12. CENTRUM [Concomitant]

REACTIONS (1)
  - BLOOD PRESSURE INADEQUATELY CONTROLLED [None]
